FAERS Safety Report 7559868-2 (Version None)
Quarter: 2011Q2

REPORT INFORMATION
  Report Type: 
  Country: None (occurrence: None)
  Receive Date: 20110621
  Receipt Date: 20110614
  Transmission Date: 20111010
  Serious: Yes (Other)
  Sender: FDA-Public Use
  Company Number: US-BRACCO-006349

PATIENT
  Age: 55 Year
  Sex: Male

DRUGS (12)
  1. MULTI-VITAMINS [Concomitant]
  2. MULTIHANCE [Suspect]
     Indication: NUCLEAR MAGNETIC RESONANCE IMAGING BRAIN
     Route: 042
     Dates: start: 20110614, end: 20110614
  3. TRAZODONE HCL [Concomitant]
  4. VENLAFAXINE [Concomitant]
  5. MULTIHANCE [Suspect]
     Indication: HAEMORRHAGE
     Route: 042
     Dates: start: 20110614, end: 20110614
  6. MULTIHANCE [Suspect]
     Indication: SYNCOPE
     Route: 042
     Dates: start: 20110614, end: 20110614
  7. GLIPIZIDE [Concomitant]
  8. SIMVASTATIN [Concomitant]
  9. ACETAMINOPHEN [Concomitant]
  10. MULTIHANCE [Suspect]
     Indication: HEADACHE
     Route: 042
     Dates: start: 20110614, end: 20110614
  11. ALBUTEROL SULFATE AUTOHALER [Concomitant]
  12. METFORMIN HCL [Concomitant]

REACTIONS (4)
  - PULSE ABSENT [None]
  - BALANCE DISORDER [None]
  - NAUSEA [None]
  - MALAISE [None]
